FAERS Safety Report 8505529-2 (Version None)
Quarter: 2012Q2

REPORT INFORMATION
  Report Type: 
  Country: None (occurrence: None)
  Receive Date: 20120405
  Receipt Date: 20090922
  Transmission Date: 20120825
  Serious: Yes (Other)
  Sender: FDA-Public Use
  Company Number: PHEH2009US11573

PATIENT
  Age: 81 Year
  Sex: Female

DRUGS (1)
  1. RECLAST [Suspect]
     Indication: OSTEOPOROSIS POSTMENOPAUSAL
     Dosage: 5MG/100 ML, ONCE EVERY TWO YEARS, INTRAVENOUS
     Route: 042

REACTIONS (5)
  - CHILLS [None]
  - EYE PAIN [None]
  - IRITIS [None]
  - MASTICATION DISORDER [None]
  - PAIN IN JAW [None]
